FAERS Safety Report 19117462 (Version 1)
Quarter: 2021Q2

REPORT INFORMATION
  Report Type: Spontaneous
  Country: FR (occurrence: FR)
  Receive Date: 20210409
  Receipt Date: 20210409
  Transmission Date: 20210717
  Serious: Yes (Hospitalization)
  Sender: FDA-Public Use
  Company Number: FR-BRISTOL-MYERS SQUIBB COMPANY-BMS-2021-033347

PATIENT
  Age: 78 Year
  Sex: Female
  Weight: 84 kg

DRUGS (1)
  1. ELIQUIS [Suspect]
     Active Substance: APIXABAN
     Indication: CEREBROVASCULAR ACCIDENT PROPHYLAXIS
     Dosage: 10 MG DAILY
     Route: 048
     Dates: start: 20200721, end: 20200804

REACTIONS (3)
  - Haematoma [Recovered/Resolved]
  - Postoperative wound complication [Recovered/Resolved]
  - Bloody discharge [Recovered/Resolved]

NARRATIVE: CASE EVENT DATE: 20200803
